FAERS Safety Report 8365053-7 (Version None)
Quarter: 2012Q2

REPORT INFORMATION
  Report Type: 
  Country: None (occurrence: None)
  Receive Date: 20120516
  Receipt Date: 20100708
  Transmission Date: 20120825
  Serious: Yes (Other)
  Sender: FDA-Public Use
  Company Number: US-GLAXOSMITHKLINE-Z0003795B

PATIENT
  Age: 83 Year
  Sex: Female

DRUGS (1)
  1. VOTRIENT [Suspect]
     Indication: OVARIAN CANCER
     Dosage: 800MG PER DAY
     Route: 048
     Dates: start: 20100504, end: 20100630

REACTIONS (1)
  - VERTIGO [None]
